FAERS Safety Report 24384365 (Version 2)
Quarter: 2024Q4

REPORT INFORMATION
  Report Type: Spontaneous
  Country: US (occurrence: US)
  Receive Date: 20241001
  Receipt Date: 20241008
  Transmission Date: 20250115
  Serious: Yes (Other)
  Sender: AMGEN
  Company Number: US-AMGEN-USASP2024191865

PATIENT

DRUGS (1)
  1. IMDELLTRA [Suspect]
     Active Substance: TARLATAMAB-DLLE
     Indication: Neuroendocrine tumour
     Dosage: 1 MILLIGRAM, RECEIVED 3 OR 4 DOSES
     Route: 065

REACTIONS (3)
  - Spinal cord compression [Unknown]
  - Pyrexia [Unknown]
  - Off label use [Unknown]
